FAERS Safety Report 22042064 (Version 1)
Quarter: 2023Q1

REPORT INFORMATION
  Report Type: Spontaneous
  Country: MY (occurrence: MY)
  Receive Date: 20230227
  Receipt Date: 20230227
  Transmission Date: 20230417
  Serious: Yes (Death, Hospitalization, Other)
  Sender: FDA-Public Use
  Company Number: MY-BAYER-2023A023820

PATIENT
  Age: 75 Year
  Sex: Male

DRUGS (2)
  1. XARELTO [Suspect]
     Active Substance: RIVAROXABAN
     Indication: Prophylaxis
     Dosage: 20 MG
     Route: 048
  2. CELEBREX [Suspect]
     Active Substance: CELECOXIB

REACTIONS (5)
  - Death [Fatal]
  - Gastric ulcer haemorrhage [Unknown]
  - Hypoxia [Unknown]
  - Cerebrovascular accident [Unknown]
  - Gastric operation [Unknown]

NARRATIVE: CASE EVENT DATE: 20230224
